FAERS Safety Report 14034556 (Version 7)
Quarter: 2019Q4

REPORT INFORMATION
  Report Type: Spontaneous
  Country: US (occurrence: US)
  Receive Date: 20171003
  Receipt Date: 20191216
  Transmission Date: 20200122
  Serious: No
  Sender: FDA-Public Use
  Company Number: US-PFIZER INC-2017421775

PATIENT
  Age: 58 Year
  Sex: Female
  Weight: 62 kg

DRUGS (2)
  1. FLECTOR [Suspect]
     Active Substance: DICLOFENAC EPOLAMINE
     Indication: WALKING DISABILITY
     Dosage: 1 DF, DAILY (ONE PATCH A DAY; STAYS ON FOR 12 HOURS)
     Route: 062
     Dates: start: 201708, end: 201908
  2. FLECTOR [Suspect]
     Active Substance: DICLOFENAC EPOLAMINE
     Indication: PAIN
     Dosage: 1 DF, 2X/DAY (PLACE 1 PATCH EVERY 12 HOURS)
     Route: 062

REACTIONS (3)
  - Intentional product misuse [Unknown]
  - Therapeutic product effect incomplete [Unknown]
  - Malaise [Unknown]

NARRATIVE: CASE EVENT DATE: 201708
